FAERS Safety Report 9861760 (Version 1)
Quarter: 2014Q1

REPORT INFORMATION
  Report Type: Spontaneous
  Country: GR (occurrence: GR)
  Receive Date: 20140203
  Receipt Date: 20140203
  Transmission Date: 20141002
  Serious: Yes (Other)
  Sender: FDA-Public Use
  Company Number: GR-ACCORD-021520

PATIENT
  Age: 67 Year
  Sex: Male

DRUGS (3)
  1. MYCOPHENOLIC ACID [Suspect]
     Indication: IMMUNOSUPPRESSION
  2. TACROLIMUS [Suspect]
     Indication: IMMUNOSUPPRESSION
  3. PREDNISOLONE [Suspect]
     Indication: IMMUNOSUPPRESSION

REACTIONS (1)
  - Prostatitis [Recovered/Resolved]
